FAERS Safety Report 14835794 (Version 1)
Quarter: 2018Q2

REPORT INFORMATION
  Report Type: Spontaneous
  Country: US (occurrence: US)
  Receive Date: 20180502
  Receipt Date: 20180502
  Transmission Date: 20180711
  Serious: No
  Sender: FDA-Public Use
  Company Number: US-TEVA-2018-US-886511

PATIENT
  Sex: Female

DRUGS (1)
  1. JUNEL [Suspect]
     Active Substance: ETHINYL ESTRADIOL\NORETHINDRONE ACETATE
     Indication: CONTRACEPTION
     Dosage: DOSE STRENGTH: 1 MG/20 MCG
     Route: 065
     Dates: start: 20180415

REACTIONS (3)
  - Irritability [Unknown]
  - Affective disorder [Unknown]
  - Insomnia [Unknown]
